FAERS Safety Report 17217120 (Version 1)
Quarter: 2019Q4

REPORT INFORMATION
  Report Type: Spontaneous
  Country: VN (occurrence: VN)
  Receive Date: 20191231
  Receipt Date: 20191231
  Transmission Date: 20200122
  Serious: Yes (Other)
  Sender: FDA-Public Use
  Company Number: VN-ROCHE-2501586

PATIENT
  Age: 39 Year

DRUGS (9)
  1. CYCLOPHOSPHAMIDE. [Suspect]
     Active Substance: CYCLOPHOSPHAMIDE
     Indication: HER-2 POSITIVE BREAST CANCER
     Route: 065
  2. DOCETAXEL. [Suspect]
     Active Substance: DOCETAXEL
     Dosage: PART OF THP REGIMEN (CYCLE 2 ONWARDS)
     Route: 065
  3. FILGRASTIM [Suspect]
     Active Substance: FILGRASTIM
     Indication: WHITE BLOOD CELL COUNT DECREASED
     Dosage: 30 MU X 5 SYRINGES 24 HOURS AFTER CHEMICAL TRANSFUSION
     Route: 065
  4. TRASTUZUMAB. [Suspect]
     Active Substance: TRASTUZUMAB
     Dosage: PART OF THP REGIMEN (CYCLE 2 ONWARDS)
     Route: 065
  5. TRASTUZUMAB. [Suspect]
     Active Substance: TRASTUZUMAB
     Indication: HER-2 POSITIVE BREAST CANCER
     Dosage: PART OF THP REGIMEN (CYCLE 1)
     Route: 065
  6. PERTUZUMAB. [Suspect]
     Active Substance: PERTUZUMAB
     Dosage: PART OF THP REGIMEN (CYCLE 2 ONWARDS)
     Route: 065
  7. DOXORUBICIN [Suspect]
     Active Substance: DOXORUBICIN
     Indication: HER-2 POSITIVE BREAST CANCER
     Route: 065
  8. PERTUZUMAB. [Suspect]
     Active Substance: PERTUZUMAB
     Indication: HER-2 POSITIVE BREAST CANCER
     Dosage: PART OF THP REGIMEN (CYCLE 1)
     Route: 065
  9. DOCETAXEL. [Suspect]
     Active Substance: DOCETAXEL
     Indication: HER-2 POSITIVE BREAST CANCER
     Dosage: PART OF THP REGIMEN (CYCLE 1)
     Route: 065

REACTIONS (5)
  - Mastitis [Unknown]
  - Breast fibroma [Unknown]
  - Inflammation [Unknown]
  - Stomatitis [Unknown]
  - Diarrhoea [Unknown]
